FAERS Safety Report 23907765 (Version 1)
Quarter: 2024Q2

REPORT INFORMATION
  Report Type: Spontaneous
  Country: US (occurrence: US)
  Receive Date: 20240528
  Receipt Date: 20240528
  Transmission Date: 20240715
  Serious: Yes (Hospitalization, Other)
  Sender: FDA-Public Use
  Company Number: US-AMNEAL PHARMACEUTICALS-2024-AMRX-01836

PATIENT
  Age: 39 Year
  Sex: Male

DRUGS (1)
  1. AMLODIPINE BESYLATE [Suspect]
     Active Substance: AMLODIPINE BESYLATE
     Indication: Hypertension
     Dosage: 80 TABLETS OF 10MG
     Route: 048

REACTIONS (8)
  - Capillary leak syndrome [Recovered/Resolved]
  - Lactic acidosis [Recovered/Resolved]
  - Renal tubular necrosis [Recovered/Resolved]
  - Distributive shock [Recovered/Resolved]
  - Acute respiratory distress syndrome [Recovered/Resolved]
  - Unevaluable event [Recovered/Resolved]
  - Suicide attempt [Unknown]
  - Intentional overdose [Unknown]
